FAERS Safety Report 14453418 (Version 1)
Quarter: 2018Q1

REPORT INFORMATION
  Report Type: Spontaneous
  Country: PK (occurrence: PK)
  Receive Date: 20180129
  Receipt Date: 20180129
  Transmission Date: 20180509
  Serious: Yes (Hospitalization)
  Sender: FDA-Public Use
  Company Number: PK-GLAXOSMITHKLINE-PK2018GSK014238

PATIENT
  Age: 16 Year
  Sex: Female

DRUGS (1)
  1. VOLTRAL [Suspect]
     Active Substance: DICLOFENAC SODIUM
     Indication: BREAST PAIN
     Dosage: 100 MG, QD
     Route: 048
     Dates: start: 20171219, end: 20180123

REACTIONS (1)
  - Epistaxis [Unknown]

NARRATIVE: CASE EVENT DATE: 20180123
